FAERS Safety Report 9631802 (Version 1)
Quarter: 2013Q4

REPORT INFORMATION
  Report Type: Spontaneous
  Country: US (occurrence: US)
  Receive Date: 20131018
  Receipt Date: 20131018
  Transmission Date: 20140711
  Serious: Yes (Other)
  Sender: FDA-Public Use
  Company Number: US-PFIZER INC-2013296024

PATIENT
  Age: 21 Year
  Sex: Female
  Weight: 90.7 kg

DRUGS (4)
  1. GEODON [Suspect]
     Indication: BIPOLAR DISORDER
     Dosage: 60 MG, DAILY
     Dates: start: 201308, end: 201309
  2. TRAZODONE [Concomitant]
     Indication: SLEEP DISORDER
     Dosage: 100 MG, UNK
  3. LAMOTRIGINE [Concomitant]
     Indication: SLEEP DISORDER
     Dosage: 100 MG, UNK
  4. CITALOPRAM [Concomitant]
     Indication: SLEEP DISORDER
     Dosage: 40 MG, UNK

REACTIONS (5)
  - Drug prescribing error [Recovered/Resolved]
  - Measles [Recovered/Resolved]
  - Nausea [Recovered/Resolved]
  - Fatigue [Recovered/Resolved]
  - Dizziness [Recovered/Resolved]
